FAERS Safety Report 21476653 (Version 1)
Quarter: 2022Q4

REPORT INFORMATION
  Report Type: Spontaneous
  Country: US (occurrence: None)
  Receive Date: 20221019
  Receipt Date: 20221019
  Transmission Date: 20230113
  Serious: No
  Sender: FDA-Public Use
  Company Number: US-ADAMAS Pharma-ADM202204-000648

PATIENT
  Age: 68 Year
  Sex: Female

DRUGS (13)
  1. GOCOVRI [Suspect]
     Active Substance: AMANTADINE
     Indication: Parkinson^s disease
     Route: 048
     Dates: start: 20191203
  2. GOCOVRI [Suspect]
     Active Substance: AMANTADINE
     Indication: Dyskinesia
  3. VITAMIN D [Concomitant]
     Active Substance: VITAMIN D NOS
     Dosage: 400 UNIT
  4. BILBERRY [Concomitant]
     Active Substance: BILBERRY
     Dosage: 80 MG
  5. LUTEIN [Concomitant]
     Active Substance: LUTEIN
     Dosage: 20 MG
  6. PRAMIPEXOLE [Concomitant]
     Active Substance: PRAMIPEXOLE
     Dosage: 0.25 MG
  7. PROPRANOLOL [Concomitant]
     Active Substance: PROPRANOLOL HYDROCHLORIDE
     Dosage: 20 MG
  8. SERTRALINE [Concomitant]
     Active Substance: SERTRALINE HYDROCHLORIDE
     Dosage: 50 MG
  9. SINEMET [Concomitant]
     Active Substance: CARBIDOPA\LEVODOPA
     Dosage: EACH DF CONTAINS 25-100 MG
  10. VITAMIN B12 [Concomitant]
     Active Substance: CYANOCOBALAMIN
     Dosage: 100 MCG
  11. VITAMIN B6 [Concomitant]
     Active Substance: PYRIDOXINE HYDROCHLORIDE
     Dosage: 50 MG
  12. SINEMET CR [Concomitant]
     Active Substance: CARBIDOPA\LEVODOPA
     Dosage: EACH DF CONTAINS 50-200 MG
  13. OXYBUTYNIN [Concomitant]
     Active Substance: OXYBUTYNIN
     Indication: Incontinence
     Dosage: 5 MG

REACTIONS (2)
  - Feeling abnormal [Not Recovered/Not Resolved]
  - Balance disorder [Not Recovered/Not Resolved]
